FAERS Safety Report 24827671 (Version 1)
Quarter: 2025Q1

REPORT INFORMATION
  Report Type: Spontaneous
  Country: CN (occurrence: CN)
  Receive Date: 20250109
  Receipt Date: 20250109
  Transmission Date: 20250408
  Serious: Yes (Other)
  Sender: JAZZ
  Company Number: CN-JAZZ PHARMACEUTICALS-2024-CN-024679

PATIENT
  Age: 54 Year
  Sex: Male
  Weight: 74 kg

DRUGS (7)
  1. ZEPZELCA [Suspect]
     Active Substance: LURBINECTEDIN
     Indication: Lung neoplasm malignant
     Route: 042
     Dates: start: 20241108, end: 20241108
  2. BUFALIN [Concomitant]
     Indication: Lung neoplasm malignant
     Dosage: 2 DOSAGE FORM, Q8H
     Route: 048
     Dates: start: 20241106, end: 20241112
  3. CINOBUFAGIN [Concomitant]
     Active Substance: CINOBUFAGIN
     Indication: Lung neoplasm malignant
     Dosage: 2 DOSAGE FORM, Q8H
     Dates: start: 20241106, end: 20241112
  4. RESIBUFOGENIN [Concomitant]
     Indication: Lung neoplasm malignant
     Dosage: 2 DOSAGE FORM, Q8H
     Dates: start: 20241106, end: 20241112
  5. DEXTROSE [Concomitant]
     Active Substance: DEXTROSE MONOHYDRATE
     Indication: Vehicle solution use
     Dosage: 250 MILLILITER, QD
     Route: 042
     Dates: start: 20241108, end: 20241108
  6. DOLASETRON [Concomitant]
     Active Substance: DOLASETRON
     Indication: Antiallergic therapy
     Dosage: 100 MILLIGRAM, QD, INTRAVENOUS DRIP
     Dates: start: 20241108, end: 20241109
  7. DOLASETRON [Concomitant]
     Active Substance: DOLASETRON
     Indication: Prophylaxis of nausea and vomiting

REACTIONS (1)
  - Myelosuppression [Recovering/Resolving]

NARRATIVE: CASE EVENT DATE: 20241110
